FAERS Safety Report 8342679-8 (Version None)
Quarter: 2012Q2

REPORT INFORMATION
  Report Type: 
  Country: None (occurrence: None)
  Receive Date: 20120508
  Receipt Date: 20120502
  Transmission Date: 20120825
  Serious: Yes (Hospitalization)
  Sender: FDA-Public Use
  Company Number: FR-AMGEN-FRASP2012027469

PATIENT
  Age: 57 Year
  Sex: Male

DRUGS (6)
  1. LEVOTHYROXINE SODIUM [Concomitant]
  2. ARANESP [Suspect]
     Indication: ANAEMIA
     Dosage: 40 MUG, UNK
     Route: 058
     Dates: start: 20120324, end: 20120324
  3. PRETERAX                           /01421201/ [Concomitant]
  4. ASPIRIN [Concomitant]
  5. MIRCERA [Concomitant]
     Dosage: 75 MUG, QMO
  6. FLECAINIDE ACETATE [Concomitant]

REACTIONS (1)
  - PURPURA [None]
